FAERS Safety Report 12340618 (Version 1)
Quarter: 2016Q2

REPORT INFORMATION
  Report Type: Spontaneous
  Country: US (occurrence: None)
  Receive Date: 20160505
  Receipt Date: 20160505
  Transmission Date: 20160815
  Serious: Yes (Other)
  Sender: FDA-Public Use
  Company Number: None

PATIENT
  Age: 7 Year
  Sex: Male
  Weight: 34.02 kg

DRUGS (10)
  1. ABILIFY [Suspect]
     Active Substance: ARIPIPRAZOLE
     Indication: BIPOLAR DISORDER
     Dosage: IN THE MORNING TAKEN BY MOUTH
     Route: 048
  2. QVAR [Concomitant]
     Active Substance: BECLOMETHASONE DIPROPIONATE
  3. ABILIFY [Suspect]
     Active Substance: ARIPIPRAZOLE
     Indication: AUTISM SPECTRUM DISORDER
     Dosage: IN THE MORNING TAKEN BY MOUTH
     Route: 048
  4. ALBUTEROL. [Concomitant]
     Active Substance: ALBUTEROL
  5. CLONIDINE. [Concomitant]
     Active Substance: CLONIDINE
  6. GABAPENTIN. [Concomitant]
     Active Substance: GABAPENTIN
  7. MELATONIN [Concomitant]
     Active Substance: MELATONIN
  8. BENADRYL [Concomitant]
     Active Substance: DIPHENHYDRAMINE HYDROCHLORIDE
  9. TRAZODONE [Concomitant]
     Active Substance: TRAZODONE HYDROCHLORIDE
  10. ZYRTEC [Concomitant]
     Active Substance: CETIRIZINE HYDROCHLORIDE

REACTIONS (2)
  - Aggression [None]
  - Impulse-control disorder [None]
